FAERS Safety Report 18490616 (Version 1)
Quarter: 2020Q4

REPORT INFORMATION
  Report Type: Spontaneous
  Country: US (occurrence: US)
  Receive Date: 20201111
  Receipt Date: 20201111
  Transmission Date: 20210114
  Serious: Yes (Other)
  Sender: FDA-Public Use
  Company Number: NVSC2020US296856

PATIENT
  Age: 56 Year
  Sex: Female

DRUGS (1)
  1. CISATRACURIUM. [Suspect]
     Active Substance: CISATRACURIUM
     Indication: PRODUCT USED FOR UNKNOWN INDICATION
     Dosage: 10 X 5 ML
     Route: 065

REACTIONS (1)
  - Anaphylactic shock [Unknown]
